FAERS Safety Report 24269965 (Version 1)
Quarter: 2024Q3

REPORT INFORMATION
  Report Type: Report from Study
  Country: US (occurrence: US)
  Receive Date: 20240830
  Receipt Date: 20240830
  Transmission Date: 20241017
  Serious: Yes (Hospitalization, Other)
  Sender: EISAI
  Company Number: US-Eisai-EC-2024-170003

PATIENT
  Age: 63 Year
  Sex: Female

DRUGS (13)
  1. LEQEMBI [Suspect]
     Active Substance: LECANEMAB-IRMB
     Indication: Dementia Alzheimer^s type
     Dosage: DOSE  UNKNOWN.
     Route: 042
     Dates: start: 20240522, end: 202406
  2. LEQEMBI [Suspect]
     Active Substance: LECANEMAB-IRMB
     Dosage: DOSE  UNKNOWN.
     Route: 042
     Dates: start: 20240703, end: 20240703
  3. WEGOVY [Suspect]
     Active Substance: SEMAGLUTIDE
     Indication: Weight decreased
     Dosage: DOSE AND FREQUENCY UNKNOWN
     Route: 065
     Dates: end: 20240701
  4. ENTRESTO [Suspect]
     Active Substance: SACUBITRIL\VALSARTAN
     Indication: Product used for unknown indication
     Dosage: DOSE 24-26 MG
     Route: 048
     Dates: start: 20240617, end: 20240701
  5. BETAMETHASONE [Concomitant]
     Active Substance: BETAMETHASONE\BETAMETHASONE DIPROPIONATE
  6. COREG [Concomitant]
     Active Substance: CARVEDILOL
  7. DONEPEZIL [Concomitant]
     Active Substance: DONEPEZIL\DONEPEZIL HYDROCHLORIDE
  8. ESTRADIOL [Concomitant]
     Active Substance: ESTRADIOL
  9. LEVOTHYROXINE [Concomitant]
     Active Substance: LEVOTHYROXINE\LEVOTHYROXINE SODIUM
  10. LEXAPRO [Concomitant]
     Active Substance: ESCITALOPRAM OXALATE
  11. MEMANTINE [Concomitant]
     Active Substance: MEMANTINE
  12. MIRABEGRON [Concomitant]
     Active Substance: MIRABEGRON
  13. RESTASIS [Concomitant]
     Active Substance: CYCLOSPORINE

REACTIONS (8)
  - Amyloid related imaging abnormality-oedema/effusion [Unknown]
  - Confusional state [Unknown]
  - Cardiomyopathy [Unknown]
  - Fall [Unknown]
  - Muscular weakness [Unknown]
  - Dehydration [Unknown]
  - Urinary tract infection [Unknown]
  - Disease progression [Unknown]

NARRATIVE: CASE EVENT DATE: 20240601
